FAERS Safety Report 25690533 (Version 3)
Quarter: 2025Q4

REPORT INFORMATION
  Report Type: Spontaneous
  Country: US (occurrence: US)
  Receive Date: 20250818
  Receipt Date: 20251106
  Transmission Date: 20260118
  Serious: No
  Sender: JOHNSON AND JOHNSON
  Company Number: US-JNJFOC-20250818719

PATIENT
  Age: 23 Year
  Sex: Female

DRUGS (1)
  1. TREMFYA [Suspect]
     Active Substance: GUSELKUMAB
     Indication: Psoriasis
     Dosage: 100.00 MG/ML
     Route: 065
     Dates: start: 20240205

REACTIONS (5)
  - Device malfunction [Unknown]
  - Device malfunction [Unknown]
  - Device leakage [Unknown]
  - Product dose omission issue [Unknown]
  - Product storage error [Unknown]

NARRATIVE: CASE EVENT DATE: 20250815
